FAERS Safety Report 24073173 (Version 2)
Quarter: 2024Q3

REPORT INFORMATION
  Report Type: Spontaneous
  Country: CA (occurrence: CA)
  Receive Date: 20240710
  Receipt Date: 20240805
  Transmission Date: 20241017
  Serious: Yes (Other)
  Sender: MYLAN
  Company Number: CA-MYLANLABS-2024M1064041

PATIENT
  Age: 28 Year
  Sex: Female

DRUGS (5)
  1. GABAPENTIN [Suspect]
     Active Substance: GABAPENTIN
     Indication: Drug use disorder
     Dosage: 100 MILLIGRAM, BID
     Route: 065
  2. GABAPENTIN [Suspect]
     Active Substance: GABAPENTIN
     Dosage: 100 MILLIGRAM, TID, THREE TIMES A DAY
     Route: 065
  3. GABAPENTIN [Suspect]
     Active Substance: GABAPENTIN
     Dosage: 400 MILLIGRAM, TID, THREE TIMES A DAY
     Route: 065
  4. KETAMINE [Concomitant]
     Active Substance: KETAMINE
     Indication: Schizoaffective disorder
     Dosage: 0.1 GRAM, QD, THE PATIENT SMOKED KETAMINE
     Route: 055
  5. KETAMINE [Concomitant]
     Active Substance: KETAMINE
     Dosage: UNK, THE PATIENT SMOKED KETAMINE 3-6 G/DAY
     Route: 055

REACTIONS (2)
  - Drug ineffective for unapproved indication [Unknown]
  - Off label use [Unknown]
